FAERS Safety Report 6573813-8 (Version None)
Quarter: 2010Q1

REPORT INFORMATION
  Report Type: 
  Country: None (occurrence: None)
  Receive Date: 20100204
  Receipt Date: 20100204
  Transmission Date: 20100710
  Serious: Yes (Other)
  Sender: FDA-Public Use
  Company Number: None

PATIENT
  Age: 31 Year
  Sex: Female
  Weight: 52 kg

DRUGS (1)
  1. PENTAMIDINE ISETHIONATE [Suspect]
     Indication: BONE MARROW TRANSPLANT
     Dosage: 300 MG ONCE IV 1 TIME DOSE
     Route: 042

REACTIONS (1)
  - HYPOAESTHESIA ORAL [None]
